FAERS Safety Report 9432976 (Version 4)
Quarter: 2013Q3

REPORT INFORMATION
  Report Type: Spontaneous
  Country: FR (occurrence: None)
  Receive Date: 20130729
  Receipt Date: 20130830
  Transmission Date: 20140515
  Serious: Yes (Hospitalization)
  Sender: FDA-Public Use
  Company Number: AUR-APL-2013-06261

PATIENT
  Age: 79 Year
  Sex: Female

DRUGS (8)
  1. RAMIPRIL [Suspect]
     Indication: HYPERTENSION
     Dosage: 1 IN 1 D
     Route: 048
  2. TAHOR (ATORVASTATIN CALCIUM) [Suspect]
     Indication: PROPHYLAXIS
     Dosage: 1 IN 1 D
     Route: 048
  3. ARIXTRA (FONDAPARINUX SODIUM) [Suspect]
     Indication: PROPHYLAXIS
     Dosage: 2.5 MG, 1 IN 1 D
     Route: 058
     Dates: start: 20120418, end: 20130430
  4. KARDEGIC (ACETYLSALICYLATE LYSINE) [Suspect]
     Indication: PROPHYLAXIS
     Dosage: (75 MG, 1 D)
     Route: 048
  5. AVLOCARDYL [Suspect]
     Indication: HYPERTENSION
     Dosage: 20 MG (10 MG, 2 IN 1 D)
     Route: 048
  6. LEVOTHYROXINE [Suspect]
     Indication: HYPOTHYROIDISM
     Dosage: 75 MCG, I D, ORAL
     Route: 048
  7. NAFTIDROFURYL (NAFTIDROFURYL) [Suspect]
     Indication: PERIPHERAL ARTERIAL OCCLUSIVE DISEASE
     Dosage: 600 MG ( 200 MG, 3 IN 1 D) ORAL
     Route: 048
  8. DAFALGAN [Suspect]
     Indication: PAIN
     Dosage: (1 GM, 3 IN 1 D)
     Route: 048

REACTIONS (6)
  - Muscle haemorrhage [None]
  - Abdominal pain [None]
  - Pain in extremity [None]
  - Muscle haemorrhage [None]
  - Hypertension [None]
  - Anaemia [None]
